FAERS Safety Report 4273165-2 (Version None)
Quarter: 2004Q1

REPORT INFORMATION
  Report Type: 
  Country: None (occurrence: None)
  Receive Date: 20040116
  Receipt Date: 20040106
  Transmission Date: 20041129
  Serious: Yes (Other)
  Sender: FDA-Public Use
  Company Number: PHEH2004US00555

PATIENT
  Age: 64 Year
  Sex: Female

DRUGS (1)
  1. SANDIMMUNE [Suspect]
     Dosage: 100 ML, UNK
     Route: 048
     Dates: start: 20020101

REACTIONS (2)
  - DIPLOPIA [None]
  - TRANSIENT ISCHAEMIC ATTACK [None]
